FAERS Safety Report 6521015-3 (Version None)
Quarter: 2009Q4

REPORT INFORMATION
  Report Type: 
  Country: None (occurrence: None)
  Receive Date: 20091229
  Receipt Date: 20051228
  Transmission Date: 20100525
  Serious: Yes (Hospitalization)
  Sender: FDA-Public Use
  Company Number: US-BAXTER-2009BH014253

PATIENT

DRUGS (3)
  1. POLYGAM [Suspect]
     Indication: IMMUNODEFICIENCY COMMON VARIABLE
     Route: 002
  2. DIPHENHYDRAMINE HCL [Concomitant]
  3. PHENERGAN HCL [Concomitant]

REACTIONS (6)
  - CHEST DISCOMFORT [None]
  - CHILLS [None]
  - DYSPHAGIA [None]
  - FLUSHING [None]
  - NAUSEA [None]
  - URTICARIA [None]
